FAERS Safety Report 14851803 (Version 1)
Quarter: 2018Q2

REPORT INFORMATION
  Report Type: Spontaneous
  Country: IT (occurrence: IT)
  Receive Date: 20180507
  Receipt Date: 20180507
  Transmission Date: 20180711
  Serious: Yes (Hospitalization)
  Sender: FDA-Public Use
  Company Number: IT-AMGEN-ITASP2018060320

PATIENT
  Age: 68 Year
  Sex: Female
  Weight: 69 kg

DRUGS (8)
  1. TAREG [Concomitant]
     Active Substance: VALSARTAN
     Dosage: 1 DF, UNK
     Route: 048
  2. FLUOROURACILE AHCL [Suspect]
     Active Substance: FLUOROURACIL
     Indication: HEAD AND NECK CANCER STAGE III
     Dosage: 5300 MG, UNK (IN TOTAL)
     Route: 065
     Dates: start: 20180222, end: 20180225
  3. NEXIUM [Concomitant]
     Active Substance: ESOMEPRAZOLE MAGNESIUM
     Dosage: 1 DF, UNK
     Route: 048
  4. DOCETAXEL ACCORD [Suspect]
     Active Substance: DOCETAXEL
     Indication: HEAD AND NECK CANCER STAGE III
     Dosage: 132 MG, UNK (IN TOTAL)
     Route: 065
     Dates: start: 20180222, end: 20180222
  5. NEULASTA [Suspect]
     Active Substance: PEGFILGRASTIM
     Indication: CHEMOTHERAPY CYTOKINE PROPHYLAXIS
     Dosage: 6 MG, UNK (IN TOTAL)
     Route: 058
     Dates: start: 20180226, end: 20180226
  6. CISPLATINO ACCORD [Suspect]
     Active Substance: CISPLATIN
     Indication: HEAD AND NECK CANCER STAGE III
     Dosage: 66 MG, QD (CONSENTRATE FOR SOLUTION)
     Route: 042
     Dates: start: 20180222, end: 20180223
  7. CITALOPRAM [Concomitant]
     Active Substance: CITALOPRAM HYDROBROMIDE
     Dosage: 20 MG, UNK
     Route: 048
  8. LORAZEPAM. [Concomitant]
     Active Substance: LORAZEPAM
     Dosage: 2.5 MG, UNK
     Route: 048

REACTIONS (3)
  - Rash papular [Recovered/Resolved]
  - Erythema [Recovered/Resolved]
  - Hypotension [Recovered/Resolved]

NARRATIVE: CASE EVENT DATE: 20180226
